FAERS Safety Report 6774577-5 (Version None)
Quarter: 2010Q2

REPORT INFORMATION
  Report Type: 
  Country: None (occurrence: None)
  Receive Date: 20100615
  Receipt Date: 20100615
  Transmission Date: 20101027
  Serious: No
  Sender: FDA-Public Use
  Company Number: None

PATIENT
  Sex: Male
  Weight: 80.7403 kg

DRUGS (2)
  1. VENLAFAXINE [Suspect]
     Indication: CARDIOVASCULAR DISORDER
     Dates: start: 20100402
  2. VENLAFAXINE [Suspect]
     Indication: PROPHYLAXIS
     Dates: start: 20100402

REACTIONS (5)
  - ABDOMINAL PAIN [None]
  - CONSTIPATION [None]
  - CYSTITIS [None]
  - DEHYDRATION [None]
  - NAUSEA [None]
